FAERS Safety Report 5915342-8 (Version None)
Quarter: 2008Q3

REPORT INFORMATION
  Report Type: 
  Country: None (occurrence: None)
  Receive Date: 20080909
  Receipt Date: 20080204
  Transmission Date: 20090109
  Serious: Yes (Other)
  Sender: FDA-Public Use
  Company Number: 163-20785-07120962 (0)

PATIENT
  Age: 72 Year
  Sex: Male

DRUGS (3)
  1. THALOMID [Suspect]
     Indication: MULTIPLE MYELOMA
     Dosage: 50 MG, 1 IN 1 D, ORAL : 100 MG, 2 IN 1 D, ORAL : 200 MG, 4 IN 1 D, ORAL
     Route: 048
     Dates: start: 20050601, end: 20060301
  2. THALOMID [Suspect]
     Indication: MULTIPLE MYELOMA
     Dosage: 50 MG, 1 IN 1 D, ORAL : 100 MG, 2 IN 1 D, ORAL : 200 MG, 4 IN 1 D, ORAL
     Route: 048
     Dates: start: 20060406, end: 20060501
  3. THALOMID [Suspect]
     Indication: MULTIPLE MYELOMA
     Dosage: 50 MG, 1 IN 1 D, ORAL : 100 MG, 2 IN 1 D, ORAL : 200 MG, 4 IN 1 D, ORAL
     Route: 048
     Dates: start: 20060615, end: 20070201

REACTIONS (1)
  - THROMBOSIS [None]
